FAERS Safety Report 21555095 (Version 1)
Quarter: 2022Q4

REPORT INFORMATION
  Report Type: Report from Study
  Country: US (occurrence: US)
  Receive Date: 20221104
  Receipt Date: 20221104
  Transmission Date: 20230113
  Serious: No
  Sender: FDA-Public Use
  Company Number: US-ABBVIE-22K-163-4419223-00

PATIENT
  Sex: Male

DRUGS (1)
  1. IMBRUVICA [Suspect]
     Active Substance: IBRUTINIB
     Indication: Product used for unknown indication
     Route: 048

REACTIONS (9)
  - Blood glucose increased [Unknown]
  - Platelet count abnormal [Unknown]
  - Alopecia [Unknown]
  - Urticaria [Unknown]
  - White blood cell count decreased [Unknown]
  - Blood uric acid increased [Unknown]
  - Neutrophil count decreased [Unknown]
  - Increased tendency to bruise [Unknown]
  - Rosacea [Unknown]
